FAERS Safety Report 20996779 (Version 2)
Quarter: 2022Q3

REPORT INFORMATION
  Report Type: Report from Study
  Country: ES (occurrence: ES)
  Receive Date: 20220623
  Receipt Date: 20220708
  Transmission Date: 20221027
  Serious: Yes (Hospitalization, Other)
  Sender: FDA-Public Use
  Company Number: ES-EXELIXIS-XL18422052639

PATIENT
  Age: 60 Year
  Sex: Male
  Weight: 50.9 kg

DRUGS (8)
  1. PLACEBO [Suspect]
     Active Substance: UNSPECIFIED INGREDIENT
     Indication: Renal cell carcinoma
     Dosage: ON 02-JUN2022 BLINDED CABOZANTINIB/PLACEBO STUDY THERAPY WAS INTERRUPTED IN RESPONSE TO IMMUNOMEDIAT
     Route: 048
     Dates: start: 20200114
  2. PLACEBO [Suspect]
     Active Substance: UNSPECIFIED INGREDIENT
     Dosage: ON AN UNSPECIFIED DATE, BLINDED ORAL CABOZANTINIB/ PLACEBO DOSE WAS REDUCED TO 20 MG, QD
     Route: 048
  3. IPILIMUMAB [Suspect]
     Active Substance: IPILIMUMAB
     Indication: Renal cell carcinoma
     Dosage: THERAPY WAS COMPLETED ACCORDING TO STUDY PROTOCOL
     Route: 042
     Dates: start: 20200114, end: 20200407
  4. ACETAMINOPHEN [Concomitant]
     Active Substance: ACETAMINOPHEN
     Indication: Product used for unknown indication
     Dosage: UNK
     Route: 065
  5. OMEPRAZOLE SODIUM [Concomitant]
     Active Substance: OMEPRAZOLE SODIUM
     Indication: Product used for unknown indication
     Dosage: UNK
     Route: 065
  6. SYMBICORT [Concomitant]
     Active Substance: BUDESONIDE\FORMOTEROL FUMARATE DIHYDRATE
     Indication: Product used for unknown indication
     Dosage: UNK
     Route: 065
  7. CICALFATE [Concomitant]
     Indication: Product used for unknown indication
     Dosage: UNK
     Route: 065
  8. ADVANTAN M [Concomitant]
     Indication: Product used for unknown indication
     Dosage: UNK
     Route: 065

REACTIONS (1)
  - Immune-mediated enterocolitis [Recovered/Resolved]

NARRATIVE: CASE EVENT DATE: 20220602
